FAERS Safety Report 7587033-1 (Version None)
Quarter: 2011Q3

REPORT INFORMATION
  Report Type: 
  Country: None (occurrence: None)
  Receive Date: 20110701
  Receipt Date: 20110623
  Transmission Date: 20111222
  Serious: Yes (Hospitalization)
  Sender: FDA-Public Use
  Company Number: NL-JNJFOC-20110608218

PATIENT
  Sex: Female
  Weight: 40.2 kg

DRUGS (3)
  1. REMICADE [Suspect]
     Indication: CROHN'S DISEASE
     Route: 042
     Dates: start: 20110311, end: 20110426
  2. AZATHIOPRINE [Concomitant]
  3. HUMIRA [Concomitant]

REACTIONS (1)
  - WEIGHT DECREASED [None]
